FAERS Safety Report 13433323 (Version 2)
Quarter: 2017Q4

REPORT INFORMATION
  Report Type: Report from Study
  Country: None (occurrence: JP)
  Receive Date: 20170412
  Receipt Date: 20171228
  Transmission Date: 20180320
  Serious: Yes (Other)
  Sender: FDA-Public Use
  Company Number: JP-ABBVIE-15P-087-1351409-00

PATIENT
  Age: 4 Year
  Sex: Female

DRUGS (56)
  1. LIPACREON [Suspect]
     Active Substance: PANCRELIPASE
     Dosage: 600 MG, QD
     Route: 048
     Dates: start: 20160118
  2. TOBI [Suspect]
     Active Substance: TOBRAMYCIN
     Dosage: 2 DF, QD
     Route: 055
     Dates: start: 20150625, end: 20150722
  3. TOBI [Suspect]
     Active Substance: TOBRAMYCIN
     Dosage: 2 DF, QD
     Route: 055
     Dates: start: 20150820, end: 20150916
  4. TOBI [Suspect]
     Active Substance: TOBRAMYCIN
     Dosage: 2 DF, QD
     Route: 055
     Dates: start: 20160526, end: 20160622
  5. TOBI [Suspect]
     Active Substance: TOBRAMYCIN
     Dosage: 2 DF, QD
     Route: 055
     Dates: start: 20161110, end: 20161207
  6. TOBI [Suspect]
     Active Substance: TOBRAMYCIN
     Dosage: 2 DF, QD
     Route: 055
     Dates: start: 20170817, end: 20170913
  7. BACTRAMIN [Concomitant]
     Active Substance: SULFAMETHOXAZOLE\TRIMETHOPRIM
     Dosage: 1.5DOSAGE FORMS
     Route: 048
     Dates: start: 20151014, end: 20160117
  8. INTAL [Concomitant]
     Active Substance: CROMOLYN SODIUM
     Indication: ASTHMA
     Dosage: 2AMPOULE
     Route: 055
  9. CLARITHROMYCIN. [Concomitant]
     Active Substance: CLARITHROMYCIN
     Dosage: UNK
     Route: 048
     Dates: start: 20171121
  10. TRANSAMIN [Concomitant]
     Active Substance: TRANEXAMIC ACID
     Indication: HAEMOPTYSIS
     Dosage: UNK
     Route: 048
     Dates: start: 20170818, end: 20170826
  11. TOBI [Suspect]
     Active Substance: TOBRAMYCIN
     Dosage: 2 DF, QD
     Route: 055
     Dates: start: 20141113, end: 20141210
  12. TOBI [Suspect]
     Active Substance: TOBRAMYCIN
     Dosage: 2 DF, QD
     Route: 055
     Dates: start: 20160204, end: 20160302
  13. TOBI [Suspect]
     Active Substance: TOBRAMYCIN
     Dosage: 2 DF, QD
     Route: 055
     Dates: start: 20170427, end: 20170524
  14. BACTRAMIN [Concomitant]
     Active Substance: SULFAMETHOXAZOLE\TRIMETHOPRIM
     Indication: ILL-DEFINED DISORDER
     Dosage: 1DOSAGE FORMS
     Route: 048
     Dates: end: 20151013
  15. KLARICID DRY SYRUP [Concomitant]
     Dosage: 90MILLIGRAM
     Route: 048
     Dates: start: 20151209, end: 20160412
  16. MEPTIN [Concomitant]
     Active Substance: PROCATEROL HYDROCHLORIDE
     Indication: CYSTIC FIBROSIS PANCREATIC
     Dosage: .4MILLILITER
     Route: 055
  17. CARBAZOCHROME SODIUM SULFONATE [Concomitant]
     Active Substance: CARBAZOCHROME SODIUM SULFONATE
     Dosage: UNK
     Route: 048
     Dates: start: 20171015, end: 20171022
  18. TRANSAMIN [Concomitant]
     Active Substance: TRANEXAMIC ACID
     Dosage: UNK
     Route: 048
     Dates: start: 20171029, end: 20171103
  19. TOBI [Suspect]
     Active Substance: TOBRAMYCIN
     Dosage: 2 DF, QD
     Route: 055
     Dates: start: 20140529, end: 20140625
  20. TOBI [Suspect]
     Active Substance: TOBRAMYCIN
     Dosage: 2 DF, QD
     Route: 055
     Dates: start: 20140918, end: 20141015
  21. TOBI [Suspect]
     Active Substance: TOBRAMYCIN
     Dosage: 2 DF, QD
     Route: 055
     Dates: start: 20150430, end: 20150527
  22. TOBI [Suspect]
     Active Substance: TOBRAMYCIN
     Dosage: 2 DF, QD
     Route: 055
     Dates: start: 20151015, end: 20151111
  23. SINGULAIR [Concomitant]
     Active Substance: MONTELUKAST SODIUM
     Dosage: ONGOING
     Route: 048
  24. MUCOSOLVAN [Concomitant]
     Active Substance: AMBROXOL HYDROCHLORIDE
     Indication: CYSTIC FIBROSIS PANCREATIC
     Dosage: 5MILLILITER
     Route: 048
  25. DAIPHEN [Concomitant]
     Active Substance: SULFAMETHOXAZOLE\TRIMETHOPRIM
     Indication: PRODUCT USED FOR UNKNOWN INDICATION
     Dosage: UNK
     Route: 048
     Dates: start: 20160118
  26. TRANSAMIN [Concomitant]
     Active Substance: TRANEXAMIC ACID
     Dosage: UNK
     Route: 048
     Dates: start: 20171015, end: 20171022
  27. LIPACREON [Suspect]
     Active Substance: PANCRELIPASE
     Indication: PANCREATIC FAILURE
     Dosage: 450 MG, QD
     Route: 048
     Dates: start: 20131212, end: 20160117
  28. PULMOZYME [Suspect]
     Active Substance: DORNASE ALFA
     Indication: CYSTIC FIBROSIS PANCREATIC
     Dosage: ONGOING
     Route: 055
     Dates: start: 20131212
  29. TOBI [Suspect]
     Active Substance: TOBRAMYCIN
     Dosage: 2 DF, QD
     Route: 055
     Dates: start: 20140724, end: 20140820
  30. TOBI [Suspect]
     Active Substance: TOBRAMYCIN
     Dosage: 2 DF, QD
     Route: 055
     Dates: start: 20151210, end: 20160105
  31. TOBI [Suspect]
     Active Substance: TOBRAMYCIN
     Dosage: 2 DF, QD
     Route: 055
     Dates: start: 20160721, end: 20160817
  32. TOBI [Suspect]
     Active Substance: TOBRAMYCIN
     Dosage: 2 DF, QD
     Route: 055
     Dates: start: 20170622, end: 20170719
  33. MUCODYNE [Concomitant]
     Active Substance: CARBOCYSTEINE
     Indication: CYSTIC FIBROSIS PANCREATIC
     Dosage: 9MILLILITER
     Route: 048
     Dates: end: 20151208
  34. KLARICID DRY SYRUP [Concomitant]
     Indication: ILL-DEFINED DISORDER
     Dosage: 80MILLILITER
     Route: 048
     Dates: end: 20151208
  35. MEPTIN [Concomitant]
     Active Substance: PROCATEROL HYDROCHLORIDE
     Dosage: ONGOING
     Route: 055
  36. CLARITHROMYCIN. [Concomitant]
     Active Substance: CLARITHROMYCIN
     Indication: PRODUCT USED FOR UNKNOWN INDICATION
     Dosage: UNK
     Route: 048
     Dates: start: 20160413, end: 20171121
  37. TOBI [Suspect]
     Active Substance: TOBRAMYCIN
     Dosage: 2 DF, QD
     Route: 055
     Dates: start: 20150305, end: 20150401
  38. TOBI [Suspect]
     Active Substance: TOBRAMYCIN
     Dosage: 2 DF, QD
     Route: 055
     Dates: start: 20160915, end: 20161012
  39. SINGULAIR [Concomitant]
     Active Substance: MONTELUKAST SODIUM
     Indication: ASTHMA
     Dosage: 4MILLIGRAM
     Route: 048
  40. TOBI [Suspect]
     Active Substance: TOBRAMYCIN
     Dosage: 2 DF, QD
     Route: 055
     Dates: start: 20150108, end: 20150204
  41. TOBI [Suspect]
     Active Substance: TOBRAMYCIN
     Dosage: 2 DF, QD
     Route: 055
     Dates: start: 20160331, end: 20160427
  42. TOBI [Suspect]
     Active Substance: TOBRAMYCIN
     Dosage: 2 DF, QD
     Route: 055
     Dates: start: 20170105, end: 20170201
  43. TOBI [Suspect]
     Active Substance: TOBRAMYCIN
     Dosage: 2 DF, QD
     Route: 055
     Dates: start: 20171207
  44. MUCOSOLVAN [Concomitant]
     Active Substance: AMBROXOL HYDROCHLORIDE
     Dosage: ONGOING
     Route: 048
  45. INTAL [Concomitant]
     Active Substance: CROMOLYN SODIUM
     Dosage: ONGOING
     Route: 055
  46. INTAL [Concomitant]
     Active Substance: CROMOLYN SODIUM
     Dosage: ONGOING
     Route: 055
  47. CARBOCISTEINE [Concomitant]
     Active Substance: CARBOCYSTEINE
     Indication: CYSTIC FIBROSIS PANCREATIC
     Dosage: UNK
     Route: 048
     Dates: start: 20151209
  48. TOBI [Suspect]
     Active Substance: TOBRAMYCIN
     Dosage: 2 DF, QD
     Route: 055
     Dates: start: 20140403, end: 20140430
  49. TOBI [Suspect]
     Active Substance: TOBRAMYCIN
     Dosage: 2 DF, QD
     Route: 055
     Dates: start: 20171012, end: 20171108
  50. CARBAZOCHROME SODIUM SULFONATE [Concomitant]
     Active Substance: CARBAZOCHROME SODIUM SULFONATE
     Indication: HAEMOPTYSIS
     Dosage: UNK
     Route: 048
     Dates: start: 20170818, end: 20170822
  51. CARBAZOCHROME SODIUM SULFONATE [Concomitant]
     Active Substance: CARBAZOCHROME SODIUM SULFONATE
     Dosage: UNK
     Route: 048
     Dates: start: 20171029, end: 20171103
  52. TOBI [Suspect]
     Active Substance: TOBRAMYCIN
     Indication: CYSTIC FIBROSIS PANCREATIC
     Dosage: 2 DF, QD
     Route: 055
     Dates: start: 20131212, end: 20140108
  53. TOBI [Suspect]
     Active Substance: TOBRAMYCIN
     Dosage: 2 DF, QD
     Route: 055
     Dates: start: 20140206, end: 20140305
  54. TOBI [Suspect]
     Active Substance: TOBRAMYCIN
     Dosage: 2 DF, QD
     Route: 055
     Dates: start: 20170302, end: 20170329
  55. CARBAZOCHROME SODIUM SULFONATE [Concomitant]
     Active Substance: CARBAZOCHROME SODIUM SULFONATE
     Dosage: UNK
     Route: 048
     Dates: start: 20171008, end: 20171011
  56. TRANSAMIN [Concomitant]
     Active Substance: TRANEXAMIC ACID
     Dosage: UNK
     Route: 048
     Dates: start: 20171008, end: 20171011

REACTIONS (3)
  - Haemoptysis [Recovering/Resolving]
  - Dysphonia [Not Recovered/Not Resolved]
  - Renal tubular disorder [Not Recovered/Not Resolved]

NARRATIVE: CASE EVENT DATE: 20141030
